FAERS Safety Report 23250459 (Version 2)
Quarter: 2023Q4

REPORT INFORMATION
  Report Type: Report from Study
  Country: CA (occurrence: None)
  Receive Date: 20231201
  Receipt Date: 20231205
  Transmission Date: 20240110
  Serious: Yes (Other)
  Sender: FDA-Public Use
  Company Number: 2023A212896

PATIENT
  Sex: Male

DRUGS (1)
  1. IMFINZI [Suspect]
     Active Substance: DURVALUMAB
     Indication: Hepatocellular carcinoma
     Route: 042
     Dates: start: 20220627, end: 2023

REACTIONS (5)
  - Malaise [Unknown]
  - Off label use [Unknown]
  - Evidence based treatment [Unknown]
  - Therapy cessation [Recovered/Resolved]
  - Disease progression [Unknown]
